FAERS Safety Report 8158007-7 (Version None)
Quarter: 2012Q1

REPORT INFORMATION
  Report Type: 
  Country: None (occurrence: None)
  Receive Date: 20120222
  Receipt Date: 20120216
  Transmission Date: 20120608
  Serious: Yes (Death, Hospitalization)
  Sender: FDA-Public Use
  Company Number: PHHY2012AR013969

PATIENT
  Sex: Female

DRUGS (1)
  1. ONBREZ [Suspect]
     Indication: CHRONIC OBSTRUCTIVE PULMONARY DISEASE

REACTIONS (4)
  - NEOPLASM MALIGNANT [None]
  - OBSTRUCTIVE AIRWAYS DISORDER [None]
  - PNEUMONIA [None]
  - LUNG NEOPLASM MALIGNANT [None]
